FAERS Safety Report 9069945 (Version 1)
Quarter: 2013Q1

REPORT INFORMATION
  Report Type: Report from Study
  Country: US (occurrence: US)
  Receive Date: 20130129
  Receipt Date: 20130129
  Transmission Date: 20140127
  Serious: No
  Sender: FDA-Public Use
  Company Number: US-ABBOTT-12P-163-0938496-00

PATIENT
  Age: 63 Year
  Sex: Female
  Weight: 104.42 kg

DRUGS (9)
  1. HUMIRA 40 MG/0.8 ML PEN [Suspect]
     Indication: RHEUMATOID ARTHRITIS
     Dates: start: 201204, end: 201205
  2. ATENOLOL [Concomitant]
     Indication: HYPERTENSION
  3. DEXILANT [Concomitant]
     Indication: GASTROOESOPHAGEAL REFLUX DISEASE
  4. POTASSIUM [Concomitant]
     Indication: PRODUCT USED FOR UNKNOWN INDICATION
  5. DAYPRO [Concomitant]
     Indication: INFLAMMATION
  6. UNNAMED MEDICATION [Concomitant]
     Indication: ARRHYTHMIA
  7. FUROSEMIDE [Concomitant]
     Indication: FLUID RETENTION
  8. LANTUS [Concomitant]
     Indication: DIABETES MELLITUS
  9. SPIRIVA [Concomitant]
     Indication: BRONCHITIS CHRONIC

REACTIONS (4)
  - Cough [Recovering/Resolving]
  - Sinus congestion [Recovering/Resolving]
  - Productive cough [Recovering/Resolving]
  - Paranasal sinus hypersecretion [Recovering/Resolving]
